FAERS Safety Report 7023464-6 (Version None)
Quarter: 2010Q3

REPORT INFORMATION
  Report Type: 
  Country: None (occurrence: None)
  Receive Date: 20100929
  Receipt Date: 20100916
  Transmission Date: 20110219
  Serious: Yes (Hospitalization)
  Sender: FDA-Public Use
  Company Number: DSU-2010-04875

PATIENT
  Sex: Male

DRUGS (2)
  1. AZOR [Suspect]
     Indication: PRODUCT USED FOR UNKNOWN INDICATION
     Dosage: 10/40MG (QD), PER ORAL
     Route: 048
  2. HYDROCHLOROTHIAZIDE [Concomitant]

REACTIONS (2)
  - DEHYDRATION [None]
  - RENAL FAILURE [None]
